FAERS Safety Report 26089020 (Version 1)
Quarter: 2025Q4

REPORT INFORMATION
  Report Type: Spontaneous
  Country: US (occurrence: US)
  Receive Date: 20251125
  Receipt Date: 20251125
  Transmission Date: 20260118
  Serious: No
  Sender: SANOFI AVENTIS
  Company Number: US-SA-2025SA351756

PATIENT
  Age: 84 Year
  Sex: Male
  Weight: 70.45 kg

DRUGS (9)
  1. KEVZARA [Suspect]
     Active Substance: SARILUMAB
     Indication: Polymyalgia rheumatica
     Dosage: 200 MG, QOW
     Route: 058
  2. VITAMIN D2 [Concomitant]
     Active Substance: ERGOCALCIFEROL
     Dosage: UNK
  3. COQ10 [CONJUGATED LINOLEIC ACID;LINUM USITATISSIMUM SEED OIL;UBIDECARE [Concomitant]
     Dosage: UNK
  4. OMEGA 3 FISH OIL PLUS VITAMIN D [Concomitant]
     Dosage: UNK
  5. DIETARY SUPPLEMENT [Concomitant]
     Active Substance: DIETARY SUPPLEMENT
     Dosage: UNK
  6. VITAMINS [Concomitant]
     Active Substance: VITAMINS
     Dosage: UNK
  7. FAMOTIDINE [Concomitant]
     Active Substance: FAMOTIDINE
     Dosage: UNK
  8. ZETIA [Concomitant]
     Active Substance: EZETIMIBE
     Dosage: UNK
  9. ALLOPURINOL [Concomitant]
     Active Substance: ALLOPURINOL
     Dosage: UNK

REACTIONS (1)
  - Back pain [Unknown]

NARRATIVE: CASE EVENT DATE: 20251118
